FAERS Safety Report 15721209 (Version 3)
Quarter: 2018Q4

REPORT INFORMATION
  Report Type: Spontaneous
  Country: JP (occurrence: JP)
  Receive Date: 20181214
  Receipt Date: 20181220
  Transmission Date: 20190205
  Serious: Yes (Other)
  Sender: FDA-Public Use
  Company Number: JP-ROCHE-2228491

PATIENT
  Age: 77 Year
  Sex: Male

DRUGS (6)
  1. XELODA [Suspect]
     Active Substance: CAPECITABINE
     Indication: ANAL CANCER
     Route: 048
     Dates: start: 20170424, end: 20170525
  2. OXALIPLATIN. [Concomitant]
     Active Substance: OXALIPLATIN
     Indication: ANAL CANCER
     Dosage: LAST DOSE IN 2018
     Route: 041
     Dates: start: 20170719
  3. GIMERACIL/OTERACIL POTASSIUM/TEGAFUR [Concomitant]
     Active Substance: GIMERACIL\OTERACIL\TEGAFUR
     Indication: ANAL CANCER
     Dosage: LAST DOSE IN 2018
     Route: 042
     Dates: start: 20170719
  4. XELODA [Suspect]
     Active Substance: CAPECITABINE
     Dosage: 5 TIMES/ONCE WEEK X 3 TIEMS
     Route: 048
  5. XELODA [Suspect]
     Active Substance: CAPECITABINE
     Dosage: 5 TIMES/ONCE WEEK X TWICE
     Route: 048
  6. AVASTIN [Suspect]
     Active Substance: BEVACIZUMAB
     Indication: ANAL CANCER
     Route: 041
     Dates: start: 20170719, end: 20180425

REACTIONS (5)
  - Anal abscess [Recovered/Resolved]
  - Metastases to lung [Unknown]
  - Off label use [Unknown]
  - Intentional product use issue [Unknown]
  - Tumour perforation [Recovered/Resolved]

NARRATIVE: CASE EVENT DATE: 20180509
